FAERS Safety Report 4430868-4 (Version None)
Quarter: 2004Q3

REPORT INFORMATION
  Report Type: 
  Country: None (occurrence: None)
  Receive Date: 20040823
  Receipt Date: 20040810
  Transmission Date: 20050211
  Serious: Yes (Hospitalization)
  Sender: FDA-Public Use
  Company Number: FR-GLAXOSMITHKLINE-B0341903A

PATIENT
  Age: 50 Year
  Sex: Female
  Weight: 56 kg

DRUGS (4)
  1. DEROXAT [Suspect]
     Dosage: 20MG PER DAY
     Route: 048
     Dates: start: 20040523, end: 20040715
  2. STILNOX [Suspect]
     Dosage: 10MG PER DAY
     Route: 048
     Dates: start: 20040523, end: 20040715
  3. TERCIAN [Suspect]
     Dosage: 25MG TWICE PER DAY
     Route: 048
     Dates: start: 20040523, end: 20040715
  4. LYSANXIA [Suspect]
     Dosage: 20MG THREE TIMES PER DAY
     Route: 048
     Dates: start: 20040523, end: 20040715

REACTIONS (5)
  - AGRANULOCYTOSIS [None]
  - COMA [None]
  - DRUG TOXICITY [None]
  - HYPERTHERMIA [None]
  - SUICIDE ATTEMPT [None]
